FAERS Safety Report 8361146-9 (Version None)
Quarter: 2012Q2

REPORT INFORMATION
  Report Type: 
  Country: None (occurrence: None)
  Receive Date: 20120515
  Receipt Date: 20120430
  Transmission Date: 20120825
  Serious: Yes (Hospitalization)
  Sender: FDA-Public Use
  Company Number: DE-JUTA GMBH-2012-07616

PATIENT
  Age: 71 Year
  Sex: Female

DRUGS (2)
  1. CITALOPRAM HYDROBROMIDE [Suspect]
     Indication: DEPRESSION
     Dosage: 10-20 MG, DAILY
     Route: 065
  2. CITALOPRAM HYDROBROMIDE [Suspect]
     Dosage: UNK

REACTIONS (2)
  - RASH [None]
  - CUTANEOUS LUPUS ERYTHEMATOSUS [None]
